FAERS Safety Report 15022709 (Version 1)
Quarter: 2018Q2

REPORT INFORMATION
  Report Type: Spontaneous
  Country: ES (occurrence: ES)
  Receive Date: 20180618
  Receipt Date: 20180618
  Transmission Date: 20180711
  Serious: Yes (Hospitalization)
  Sender: FDA-Public Use
  Company Number: PHHY2018ES024508

PATIENT
  Age: 41 Year
  Sex: Male

DRUGS (3)
  1. PREDNISONA [Suspect]
     Active Substance: PREDNISONE
     Indication: DERMATITIS ATOPIC
     Dosage: 20 MG, QD
     Route: 048
     Dates: start: 20161011, end: 20161031
  2. CICLOSPORIN [Suspect]
     Active Substance: CYCLOSPORINE
     Indication: DERMATITIS ATOPIC
     Dosage: 300 MG, QD
     Route: 048
     Dates: start: 20161011, end: 20161031
  3. COLCHIMAX [Concomitant]
     Active Substance: COLCHICINE\DICYCLOMINE HYDROCHLORIDE
     Indication: FAMILIAL MEDITERRANEAN FEVER
     Dosage: 3.5 MG, QD
     Route: 048
     Dates: end: 20161031

REACTIONS (1)
  - Myopathy [Recovered/Resolved]

NARRATIVE: CASE EVENT DATE: 20161024
